FAERS Safety Report 4436937-7 (Version None)
Quarter: 2004Q3

REPORT INFORMATION
  Report Type: 
  Country: None (occurrence: None)
  Receive Date: 20040726
  Receipt Date: 20040323
  Transmission Date: 20050211
  Serious: No
  Sender: FDA-Public Use
  Company Number: USA040362931

PATIENT
  Age: 77 Year
  Sex: Female

DRUGS (19)
  1. FORTEO [Suspect]
     Indication: OSTEOPOROSIS
     Dates: start: 20030101
  2. VICODIN [Concomitant]
  3. NEURONTIN [Concomitant]
  4. ASPIRIN [Concomitant]
  5. DETROL [Concomitant]
  6. TESSALON PERLES (BENZONATATE) [Concomitant]
  7. LASIX [Concomitant]
  8. CALCIUM WITH VITAMIN D [Concomitant]
  9. CITRACAL WITH VITAMIN D [Concomitant]
  10. BETOPIC (BETAMETHASONE) [Concomitant]
  11. ESGIC-PLUS [Concomitant]
  12. MULTI-VITAMIN [Concomitant]
  13. LEXAPRO [Concomitant]
  14. FLUOXETINE HCL [Concomitant]
  15. VITAMIN E [Concomitant]
  16. ECHINACEA EXTRACT [Concomitant]
  17. STOOL SOFTENER (DOCUSATE SODIUM) [Concomitant]
  18. NEXIUM [Concomitant]
  19. PRILOSEC [Concomitant]

REACTIONS (3)
  - BACK DISORDER [None]
  - BACK PAIN [None]
  - NECK PAIN [None]
